FAERS Safety Report 5748504-3 (Version None)
Quarter: 2008Q2

REPORT INFORMATION
  Report Type: 
  Country: None (occurrence: None)
  Receive Date: 20080521
  Receipt Date: 20080514
  Transmission Date: 20081010
  Serious: Yes (Other)
  Sender: FDA-Public Use
  Company Number: 2008012626

PATIENT
  Age: 66 Year
  Sex: Female
  Weight: 61.2 kg

DRUGS (1)
  1. ROGAINE [Suspect]
     Indication: ALOPECIA
     Dosage: 1/2 CAPFUL ONCE DAILY, TOPICAL
     Route: 061
     Dates: start: 20070801, end: 20080511

REACTIONS (1)
  - PSORIASIS [None]
